FAERS Safety Report 10232831 (Version 1)
Quarter: 2014Q2

REPORT INFORMATION
  Report Type: Report from Study
  Country: NL (occurrence: NL)
  Receive Date: 20140612
  Receipt Date: 20140612
  Transmission Date: 20141212
  Serious: Yes (Death, Hospitalization)
  Sender: FDA-Public Use
  Company Number: NL-SA-2014SA076690

PATIENT
  Sex: Male
  Weight: 71 kg

DRUGS (8)
  1. CABAZITAXEL [Suspect]
     Indication: PROSTATE CANCER
     Route: 042
     Dates: start: 20131018, end: 20140220
  2. OMEPRAZOLE [Concomitant]
  3. METOCLOPRAMIDE [Concomitant]
  4. CALCIUM CARBONATE [Concomitant]
  5. ZOLADEX [Concomitant]
     Dates: start: 2007
  6. OXYCODONE [Concomitant]
  7. PARACETAMOL [Concomitant]
  8. MACROGOL [Concomitant]

REACTIONS (1)
  - Bone pain [Fatal]
